FAERS Safety Report 8968883 (Version 1)
Quarter: 2012Q4

REPORT INFORMATION
  Report Type: Report from Study
  Country: AU (occurrence: AU)
  Receive Date: 20121217
  Receipt Date: 20121217
  Transmission Date: 20130627
  Serious: Yes (Hospitalization)
  Sender: FDA-Public Use
  Company Number: AU-ROCHE-1167947

PATIENT
  Sex: Female
  Weight: 80 kg

DRUGS (9)
  1. RANIBIZUMAB [Suspect]
     Indication: PRODUCT USED FOR UNKNOWN INDICATION
     Dosage: Last dose prior to SAE : 10/Nov/2011
     Route: 050
     Dates: start: 20110414
  2. RANIBIZUMAB [Suspect]
     Route: 050
     Dates: start: 20111110
  3. RANIBIZUMAB [Suspect]
     Route: 050
     Dates: start: 20120220
  4. PERINDOPRIL [Concomitant]
     Route: 065
     Dates: start: 1999
  5. SPIRONOLACTONE [Concomitant]
     Route: 065
     Dates: start: 1999
  6. BISOPROLOL [Concomitant]
     Route: 065
     Dates: start: 1999
  7. FUROSEMIDE [Concomitant]
     Route: 065
     Dates: start: 1999
  8. CORTISONE [Concomitant]
     Route: 065
     Dates: start: 1999
  9. ASPIRIN [Concomitant]
     Route: 065
     Dates: start: 1999

REACTIONS (1)
  - Cerebrovascular accident [Recovered/Resolved]
